FAERS Safety Report 5943624-2 (Version None)
Quarter: 2008Q4

REPORT INFORMATION
  Report Type: 
  Country: None (occurrence: None)
  Receive Date: 20081106
  Receipt Date: 20081027
  Transmission Date: 20090506
  Serious: No
  Sender: FDA-Public Use
  Company Number: DE-PFIZER INC-2008087400

PATIENT
  Sex: Male

DRUGS (4)
  1. XALATAN [Suspect]
     Route: 047
  2. BISOPROLOL FUMARATE [Concomitant]
  3. ATACAND [Concomitant]
  4. TORSEMIDE [Concomitant]

REACTIONS (1)
  - NO ADVERSE EVENT [None]
